FAERS Safety Report 25218986 (Version 3)
Quarter: 2025Q2

REPORT INFORMATION
  Report Type: Spontaneous
  Country: DE (occurrence: DE)
  Receive Date: 20250421
  Receipt Date: 20250601
  Transmission Date: 20250716
  Serious: Yes (Other)
  Sender: TAKEDA
  Company Number: DE-TAKEDA-2025TUS037304

PATIENT
  Age: 60 Year
  Sex: Female

DRUGS (4)
  1. ENTYVIO [Suspect]
     Active Substance: VEDOLIZUMAB
     Indication: Crohn^s disease
  2. ENTYVIO [Suspect]
     Active Substance: VEDOLIZUMAB
     Indication: Crohn^s disease
  3. ENTYVIO [Suspect]
     Active Substance: VEDOLIZUMAB
  4. CORTISONE [Concomitant]
     Active Substance: CORTISONE

REACTIONS (2)
  - Follicular lymphoma [Unknown]
  - Hydronephrosis [Unknown]
